FAERS Safety Report 24779059 (Version 1)
Quarter: 2024Q4

REPORT INFORMATION
  Report Type: Spontaneous
  Country: US (occurrence: None)
  Receive Date: 20241226
  Receipt Date: 20241226
  Transmission Date: 20250114
  Serious: Yes (unspecified)
  Sender: Public
  Company Number: None

PATIENT
  Age: 61 Year
  Sex: Male
  Weight: 77 kg

DRUGS (1)
  1. FERRIC CARBOXYMALTOSE [Suspect]
     Active Substance: FERRIC CARBOXYMALTOSE
     Indication: Vascular operation
     Dosage: OTHER FREQUENCY : ONCE;?
     Route: 042

REACTIONS (5)
  - Anaphylactic reaction [None]
  - Headache [None]
  - Hypertension [None]
  - Upper respiratory tract congestion [None]
  - Musculoskeletal stiffness [None]

NARRATIVE: CASE EVENT DATE: 20240926
